FAERS Safety Report 7197297-4 (Version None)
Quarter: 2010Q4

REPORT INFORMATION
  Report Type: 
  Country: None (occurrence: None)
  Receive Date: 20101227
  Receipt Date: 20101214
  Transmission Date: 20110411
  Serious: Yes (Other)
  Sender: FDA-Public Use
  Company Number: JP-AMGEN-JPNSP2010007624

PATIENT

DRUGS (1)
  1. ENBREL [Suspect]
     Indication: RHEUMATOID ARTHRITIS
     Dosage: 25 DAILY , UNITS UNSPECIFIED
     Route: 058
     Dates: start: 20101018, end: 20101111

REACTIONS (2)
  - C-REACTIVE PROTEIN INCREASED [None]
  - TACHYCARDIA [None]
